FAERS Safety Report 25703053 (Version 1)
Quarter: 2025Q3

REPORT INFORMATION
  Report Type: Spontaneous
  Country: JP (occurrence: JP)
  Receive Date: 20250819
  Receipt Date: 20250819
  Transmission Date: 20251021
  Serious: Yes (Hospitalization, Other)
  Sender: SANOFI AVENTIS
  Company Number: JP-SAKK-02624905

PATIENT
  Sex: Female

DRUGS (1)
  1. DUPIXENT [Suspect]
     Active Substance: DUPILUMAB
     Indication: Asthma
     Dosage: UNK, EVERY 2 WEEKS
     Route: 058

REACTIONS (5)
  - Fall [Unknown]
  - Compression fracture [Unknown]
  - Cough [Unknown]
  - Hypoaesthesia [Unknown]
  - Pyrexia [Unknown]
